FAERS Safety Report 6717851 (Version 3)
Quarter: 2015Q3

REPORT INFORMATION
  Report Type: Report from Study
  Country: DE (occurrence: DE)
  Receive Date: 20080804
  Receipt Date: 20150903
  Transmission Date: 20151125
  Serious: Yes (Life-Threatening, Hospitalization)
  Sender: FDA-Public Use
  Company Number: DE-ROCHE-577145

PATIENT
  Age: 68 Year
  Sex: Male
  Weight: 83 kg

DRUGS (22)
  1. MYCOPHENOLATE MOFETIL. [Suspect]
     Active Substance: MYCOPHENOLATE MOFETIL
     Indication: PRODUCT USED FOR UNKNOWN INDICATION
     Route: 065
  2. MYCOPHENOLATE MOFETIL. [Suspect]
     Active Substance: MYCOPHENOLATE MOFETIL
     Route: 065
  3. CLONIDINE. [Concomitant]
     Active Substance: CLONIDINE
     Route: 065
  4. AMLODIPIN [Concomitant]
     Active Substance: AMLODIPINE BESYLATE
     Route: 065
  5. TORASEMIDE [Concomitant]
     Active Substance: TORSEMIDE
     Route: 065
  6. ALLOPURINOL. [Concomitant]
     Active Substance: ALLOPURINOL
     Dosage: UNIT: IE DAILY DOSE=46 UNIT
     Route: 065
  7. ACTRAPID [Concomitant]
     Active Substance: INSULIN HUMAN
     Dosage: UNIT: IE DAILY DOSE=86 UNIT
     Route: 065
  8. VALGANCICLOVIR [Suspect]
     Active Substance: VALGANCICLOVIR
     Indication: ANTIVIRAL PROPHYLAXIS
     Dosage: DOSE : 2X900MG PER DAY ADJUSTED TO RENAL FUNCTION FOR AT LEAST FOR 14 DAYS AS PER PROTOCOL.
     Route: 048
  9. NEBILET [Concomitant]
     Active Substance: NEBIVOLOL
     Route: 065
  10. LEVEMIR [Concomitant]
     Active Substance: INSULIN DETEMIR
     Dosage: DAILY DOSE=10 UNIT
     Route: 065
  11. PREDNISONE. [Suspect]
     Active Substance: PREDNISONE
     Indication: PRODUCT USED FOR UNKNOWN INDICATION
     Dosage: DRUG REPORTED AS: PREDNISON.
     Route: 065
  12. TACROLIMUS. [Suspect]
     Active Substance: TACROLIMUS
     Indication: PRODUCT USED FOR UNKNOWN INDICATION
     Route: 065
  13. AMLODIPIN [Concomitant]
     Active Substance: AMLODIPINE BESYLATE
     Route: 065
  14. ASPIRIN. [Concomitant]
     Active Substance: ASPIRIN
     Route: 065
  15. INSULIN [Concomitant]
     Active Substance: INSULIN NOS
     Dosage: 25/E
     Route: 065
     Dates: start: 1997
  16. PREDNISONE. [Suspect]
     Active Substance: PREDNISONE
     Route: 065
  17. TACROLIMUS. [Suspect]
     Active Substance: TACROLIMUS
     Route: 065
  18. CLONIDINE. [Concomitant]
     Active Substance: CLONIDINE
     Route: 065
  19. LEVEMIR [Concomitant]
     Active Substance: INSULIN DETEMIR
     Dosage: UNIT: IE DAILY DOSE=14 UNIT
     Route: 065
     Dates: start: 200709, end: 20080702
  20. COTRIM D.S. [Concomitant]
     Active Substance: SULFAMETHOXAZOLE\TRIMETHOPRIM
     Route: 065
  21. COTRIM D.S. [Concomitant]
     Active Substance: SULFAMETHOXAZOLE\TRIMETHOPRIM
     Route: 065
  22. FERRO SANOL DUODENAL [Concomitant]
     Active Substance: FERROUS SULFATE\GLYCINE
     Route: 065

REACTIONS (3)
  - Hyperglycaemia [Recovered/Resolved]
  - Urinary tract infection [Recovered/Resolved]
  - Angiosarcoma [Recovering/Resolving]

NARRATIVE: CASE EVENT DATE: 20070624
